FAERS Safety Report 14502512 (Version 1)
Quarter: 2018Q1

REPORT INFORMATION
  Report Type: Spontaneous
  Country: US (occurrence: US)
  Receive Date: 20180208
  Receipt Date: 20180208
  Transmission Date: 20180509
  Serious: Yes (Other)
  Sender: FDA-Public Use
  Company Number: US-AMGEN-USASP2018015471

PATIENT
  Age: 2 Day
  Sex: Male

DRUGS (2)
  1. CINACALCET HCL [Suspect]
     Active Substance: CINACALCET HYDROCHLORIDE
     Dosage: 9.6 MG/KG, QD DIVIDED THREE TIMES PER DAY
     Route: 048
  2. CINACALCET HCL [Suspect]
     Active Substance: CINACALCET HYDROCHLORIDE
     Indication: HYPERPARATHYROIDISM
     Dosage: 0.4 MG/KG, QD, DIVIDED IN TWO ORAL DOSES
     Route: 048

REACTIONS (6)
  - Off label use [Unknown]
  - Hypotonia [Recovered/Resolved]
  - Apnoea [Recovered/Resolved]
  - Irritability [Recovered/Resolved]
  - Bradycardia [Recovered/Resolved]
  - Gastroenteritis rotavirus [Recovered/Resolved]
